FAERS Safety Report 19051416 (Version 1)
Quarter: 2021Q1

REPORT INFORMATION
  Report Type: Spontaneous
  Country: US (occurrence: US)
  Receive Date: 20210324
  Receipt Date: 20210324
  Transmission Date: 20210420
  Serious: Yes (Other)
  Sender: FDA-Public Use
  Company Number: None

PATIENT
  Age: 87 Year
  Sex: Female

DRUGS (1)
  1. FLUDROCORTISONE ACETATE TAB 0.1MG [Suspect]
     Active Substance: FLUDROCORTISONE ACETATE
     Dates: start: 20190912

REACTIONS (2)
  - Fall [None]
  - Dizziness [None]

NARRATIVE: CASE EVENT DATE: 20210324
